FAERS Safety Report 9688656 (Version 2)
Quarter: 2013Q4

REPORT INFORMATION
  Report Type: Spontaneous
  Country: DE (occurrence: DE)
  Receive Date: 20131114
  Receipt Date: 20131114
  Transmission Date: 20140711
  Serious: Yes (Hospitalization)
  Sender: FDA-Public Use
  Company Number: GXKR2013DE002517

PATIENT
  Age: 58 Year
  Sex: Female
  Weight: 66 kg

DRUGS (1)
  1. TRAMADOL [Suspect]
     Indication: BACK PAIN
     Dosage: 50 MG, UNK
     Route: 048
     Dates: start: 20130717

REACTIONS (6)
  - Ileus paralytic [Recovering/Resolving]
  - Constipation [Recovering/Resolving]
  - Neuralgia [Recovering/Resolving]
  - Hypoaesthesia [Recovering/Resolving]
  - Nausea [Unknown]
  - Muscular weakness [Unknown]
